FAERS Safety Report 4351796-9 (Version None)
Quarter: 2004Q2

REPORT INFORMATION
  Report Type: 
  Country: None (occurrence: None)
  Receive Date: 20040429
  Receipt Date: 20040224
  Transmission Date: 20050107
  Serious: No
  Sender: FDA-Public Use
  Company Number: 2004-113762-NL

PATIENT
  Age: 45 Year
  Sex: Female

DRUGS (3)
  1. NUVARING [Suspect]
     Indication: ALOPECIA
     Dosage: DF DAILY VAGINAL
     Route: 067
     Dates: start: 20030701
  2. NUVARING [Suspect]
     Indication: CONTRACEPTION
     Dosage: DF DAILY VAGINAL
     Route: 067
     Dates: start: 20030701
  3. NUVARING [Suspect]
     Indication: OLIGOMENORRHOEA
     Dosage: DF DAILY VAGINAL
     Route: 067
     Dates: start: 20030701

REACTIONS (2)
  - BLOOD PRESSURE INCREASED [None]
  - NERVOUSNESS [None]
